FAERS Safety Report 6604121-4 (Version None)
Quarter: 2010Q1

REPORT INFORMATION
  Report Type: 
  Country: None (occurrence: None)
  Receive Date: 20100226
  Receipt Date: 20090511
  Transmission Date: 20100710
  Serious: No
  Sender: FDA-Public Use
  Company Number: A0787515A

PATIENT
  Sex: Female

DRUGS (1)
  1. LAMOTRIGINE [Suspect]
     Indication: BIPOLAR DISORDER

REACTIONS (2)
  - AFFECT LABILITY [None]
  - DRUG EXPOSURE DURING PREGNANCY [None]
